FAERS Safety Report 15453647 (Version 2)
Quarter: 2018Q4

REPORT INFORMATION
  Report Type: Other
  Country: US (occurrence: US)
  Receive Date: 20181001
  Receipt Date: 20181012
  Transmission Date: 20190204
  Serious: Yes (Other)
  Sender: FDA-Public Use
  Company Number: US-SUNOVION-2018SUN003662

PATIENT
  Sex: Female

DRUGS (1)
  1. APTIOM [Suspect]
     Active Substance: ESLICARBAZEPINE ACETATE
     Dosage: 400 MG, UNK
     Route: 048

REACTIONS (5)
  - Coagulopathy [Unknown]
  - Seizure [Unknown]
  - Drug ineffective [Unknown]
  - Pruritus [Unknown]
  - Skin swelling [Recovered/Resolved]
